FAERS Safety Report 4373738-2 (Version None)
Quarter: 2004Q2

REPORT INFORMATION
  Report Type: 
  Country: None (occurrence: None)
  Receive Date: 20040607
  Receipt Date: 20040607
  Transmission Date: 20050107
  Serious: Yes (Hospitalization)
  Sender: FDA-Public Use
  Company Number: None

PATIENT
  Sex: Male
  Weight: 50 kg

DRUGS (2)
  1. GATIFLOXACIN [Suspect]
     Indication: URINARY TRACT INFECTION
     Dosage: 400 MG QD ORAL
     Route: 048
     Dates: start: 20040311, end: 20040312
  2. CIPROFLOXACIN [Suspect]
     Dates: start: 20040301, end: 20040310

REACTIONS (1)
  - CLOSTRIDIUM COLITIS [None]
